FAERS Safety Report 4448409-4 (Version None)
Quarter: 2004Q3

REPORT INFORMATION
  Report Type: 
  Country: None (occurrence: None)
  Receive Date: 20040730
  Receipt Date: 20040416
  Transmission Date: 20050211
  Serious: Yes (Life-Threatening, Hospitalization)
  Sender: FDA-Public Use
  Company Number: 2004-04-1108

PATIENT
  Age: 69 Year
  Sex: Male
  Weight: 94.8018 kg

DRUGS (7)
  1. INTRON A [Suspect]
     Indication: MALIGNANT MELANOMA
     Dosage: 44 MU - 11 MU :SUBCUTANEOUS
     Route: 058
     Dates: start: 20040412, end: 20040412
  2. INTRON A [Suspect]
     Indication: MALIGNANT MELANOMA
     Dosage: 44 MU - 11 MU :SUBCUTANEOUS
     Route: 058
     Dates: start: 20040101
  3. ZEBETA (BISOPROLOL/HYDROCHLOROTHIAZIDE) [Concomitant]
  4. ATACAND HCT (CANDESARTAN/HYDROCHLOROTHIAZIDE) [Concomitant]
  5. NASACORT AQ [Concomitant]
  6. FLOVENT [Concomitant]
  7. ZETIA [Concomitant]

REACTIONS (2)
  - CHEST PAIN [None]
  - MYOCARDIAL INFARCTION [None]
